FAERS Safety Report 6269239-7 (Version None)
Quarter: 2009Q3

REPORT INFORMATION
  Report Type: 
  Country: None (occurrence: None)
  Receive Date: 20090715
  Receipt Date: 20090713
  Transmission Date: 20100115
  Serious: Yes (Other)
  Sender: FDA-Public Use
  Company Number: DK-ROXANE LABORATORIES, INC.-2009-RO-00682RO

PATIENT
  Age: 76 Year
  Sex: Male

DRUGS (3)
  1. DIGOXIN [Suspect]
     Indication: ATRIAL FIBRILLATION
  2. DIGOXIN [Suspect]
     Dosage: 187.5 MCG
  3. DIGIBIND [Suspect]
     Indication: THERAPEUTIC AGENT TOXICITY

REACTIONS (3)
  - ATRIOVENTRICULAR BLOCK COMPLETE [None]
  - CARDIOACTIVE DRUG LEVEL INCREASED [None]
  - THERAPEUTIC AGENT TOXICITY [None]
